FAERS Safety Report 16846438 (Version 6)
Quarter: 2025Q3

REPORT INFORMATION
  Report Type: Report from Study
  Country: CA (occurrence: CA)
  Receive Date: 20190924
  Receipt Date: 20250711
  Transmission Date: 20251021
  Serious: Yes (Hospitalization, Other)
  Sender: Haleon PLC
  Company Number: CA-002147023-PHHY2019CA214310

PATIENT
  Age: 60 Year
  Sex: Female

DRUGS (5)
  1. VOLTAREN [Suspect]
     Active Substance: DICLOFENAC SODIUM
     Indication: Product used for unknown indication
  2. MELOXICAM [Concomitant]
     Active Substance: MELOXICAM
     Indication: Product used for unknown indication
  3. CELEBREX [Concomitant]
     Active Substance: CELECOXIB
     Indication: Product used for unknown indication
  4. ENBREL [Concomitant]
     Active Substance: ETANERCEPT
     Indication: Product used for unknown indication
  5. HUMIRA [Concomitant]
     Active Substance: ADALIMUMAB
     Indication: Product used for unknown indication
     Route: 058
     Dates: end: 20190804

REACTIONS (11)
  - Diverticulitis [Unknown]
  - Arthralgia [Unknown]
  - Nasopharyngitis [Unknown]
  - Discomfort [Unknown]
  - Cystitis [Unknown]
  - Nephrolithiasis [Unknown]
  - Urinary tract infection [Unknown]
  - Joint swelling [Unknown]
  - Fatigue [Unknown]
  - Ankylosing spondylitis [Unknown]
  - Musculoskeletal stiffness [Unknown]
